FAERS Safety Report 8888825 (Version 5)
Quarter: 2015Q3

REPORT INFORMATION
  Report Type: Spontaneous
  Country: US (occurrence: US)
  Receive Date: 20121106
  Receipt Date: 20150731
  Transmission Date: 20151125
  Serious: Yes (Other)
  Sender: FDA-Public Use
  Company Number: US-GILEAD-2012-0060845

PATIENT
  Age: 54 Year
  Sex: Male

DRUGS (21)
  1. PREZISTA [Concomitant]
     Active Substance: DARUNAVIR ETHANOLATE
     Indication: HIV INFECTION
  2. SELENIUM [Concomitant]
     Active Substance: SELENIUM
     Indication: PRODUCT USED FOR UNKNOWN INDICATION
  3. ZIAGEN [Suspect]
     Active Substance: ABACAVIR SULFATE
     Indication: HIV INFECTION
     Dosage: 300 MG, BID
     Route: 048
     Dates: start: 20080320
  4. VALTREX [Concomitant]
     Active Substance: VALACYCLOVIR HYDROCHLORIDE
     Indication: PRODUCT USED FOR UNKNOWN INDICATION
  5. FISH OIL [Concomitant]
     Active Substance: FISH OIL
     Indication: PRODUCT USED FOR UNKNOWN INDICATION
  6. VITAMIN E [Concomitant]
     Active Substance: .ALPHA.-TOCOPHEROL
     Indication: PRODUCT USED FOR UNKNOWN INDICATION
  7. UBIDECARENONE [Concomitant]
     Active Substance: UBIDECARENONE
     Indication: PRODUCT USED FOR UNKNOWN INDICATION
  8. CHOLINE BITARTRATE [Concomitant]
     Active Substance: CHOLINE BITARTRATE
     Indication: PRODUCT USED FOR UNKNOWN INDICATION
  9. VIREAD [Suspect]
     Active Substance: TENOFOVIR DISOPROXIL FUMARATE
     Indication: HIV INFECTION
     Dosage: UNK
     Route: 065
     Dates: end: 201208
  10. ACETYLCARNITINE [Concomitant]
     Active Substance: ACETYLCARNITINE
     Indication: PRODUCT USED FOR UNKNOWN INDICATION
  11. INTELENCE [Concomitant]
     Active Substance: ETRAVIRINE
     Indication: HIV INFECTION
  12. LEVOCARNITINE. [Concomitant]
     Active Substance: LEVOCARNITINE
     Indication: PRODUCT USED FOR UNKNOWN INDICATION
  13. ERGOCALCIFEROL. [Concomitant]
     Active Substance: ERGOCALCIFEROL
     Indication: PRODUCT USED FOR UNKNOWN INDICATION
  14. SILYMARIN [Concomitant]
     Active Substance: MILK THISTLE
     Indication: PRODUCT USED FOR UNKNOWN INDICATION
  15. ALFALFA                            /01255601/ [Concomitant]
     Indication: PRODUCT USED FOR UNKNOWN INDICATION
  16. PYRIDOXINE HYDROCHLORIDE. [Concomitant]
     Active Substance: PYRIDOXINE HYDROCHLORIDE
     Indication: PRODUCT USED FOR UNKNOWN INDICATION
  17. RIBOFLAVIN [Concomitant]
     Active Substance: RIBOFLAVIN
     Indication: PRODUCT USED FOR UNKNOWN INDICATION
  18. ISENTRESS [Concomitant]
     Active Substance: RALTEGRAVIR POTASSIUM
  19. NORVIR [Concomitant]
     Active Substance: RITONAVIR
  20. LEVOGLUTAMIDE [Concomitant]
     Active Substance: GLUTAMINE
     Indication: PRODUCT USED FOR UNKNOWN INDICATION
  21. THIOCTIC ACID [Concomitant]
     Active Substance: .ALPHA.-LIPOIC ACID, (+/-)-
     Indication: PRODUCT USED FOR UNKNOWN INDICATION

REACTIONS (11)
  - Hypoaesthesia [Unknown]
  - Gait disturbance [Unknown]
  - Mitochondrial DNA depletion [Unknown]
  - Eye pain [Unknown]
  - Tinnitus [Unknown]
  - Nervous system disorder [Unknown]
  - Neuropathy peripheral [Recovering/Resolving]
  - Paraesthesia [Unknown]
  - Blood magnesium increased [Unknown]
  - Mitochondrial toxicity [Unknown]
  - Unevaluable event [Unknown]

NARRATIVE: CASE EVENT DATE: 201112
